FAERS Safety Report 16760460 (Version 1)
Quarter: 2019Q3

REPORT INFORMATION
  Report Type: Spontaneous
  Country: FR (occurrence: FR)
  Receive Date: 20190830
  Receipt Date: 20190830
  Transmission Date: 20191005
  Serious: Yes (Death, Other)
  Sender: FDA-Public Use
  Company Number: PHHY2019FR201968

PATIENT
  Sex: Female

DRUGS (2)
  1. RIFAMPICIN [Suspect]
     Active Substance: RIFAMPIN
     Indication: ACINETOBACTER INFECTION
     Route: 065
  2. COLISTIN [Suspect]
     Active Substance: COLISTIN
     Indication: ACINETOBACTER INFECTION
     Route: 065

REACTIONS (4)
  - Drug resistance [Unknown]
  - Multiple organ dysfunction syndrome [Fatal]
  - Bacterial disease carrier [Unknown]
  - Product use in unapproved indication [Unknown]
